FAERS Safety Report 9936081 (Version 1)
Quarter: 2014Q1

REPORT INFORMATION
  Report Type: Spontaneous
  Country: US (occurrence: US)
  Receive Date: 20140228
  Receipt Date: 20140228
  Transmission Date: 20141002
  Serious: No
  Sender: FDA-Public Use
  Company Number: US-AMGEN-USASP2013085919

PATIENT
  Age: 61 Year
  Sex: Male

DRUGS (1)
  1. ENBREL [Suspect]
     Indication: BACK PAIN
     Dosage: 50 MG, WEEKLY/ONLY TOOK 1 DOSE
     Route: 065
     Dates: start: 20131115, end: 20131115

REACTIONS (1)
  - Back pain [Not Recovered/Not Resolved]
